FAERS Safety Report 18533798 (Version 1)
Quarter: 2020Q4

REPORT INFORMATION
  Report Type: Spontaneous
  Country: US (occurrence: US)
  Receive Date: 20201122
  Receipt Date: 20201122
  Transmission Date: 20210114
  Serious: No
  Sender: FDA-Public Use
  Company Number: None

PATIENT
  Age: 36 Year
  Sex: Female
  Weight: 56.25 kg

DRUGS (2)
  1. MIFEPRISTONE [Suspect]
     Active Substance: MIFEPRISTONE
     Indication: ABORTION
     Dosage: ?          QUANTITY:1 TABLET(S);OTHER FREQUENCY:TOOK ONE TIME;?
     Route: 048
     Dates: start: 20191206, end: 20191206
  2. REMERON [Concomitant]
     Active Substance: MIRTAZAPINE

REACTIONS (7)
  - Haemorrhage [None]
  - Alopecia [None]
  - Stomatitis [None]
  - Adrenal disorder [None]
  - Menstruation irregular [None]
  - Hormone level abnormal [None]
  - Inflammation [None]

NARRATIVE: CASE EVENT DATE: 20191206
